FAERS Safety Report 9630559 (Version 2)
Quarter: 2013Q4

REPORT INFORMATION
  Report Type: Spontaneous
  Country: GB (occurrence: None)
  Receive Date: 20131002
  Receipt Date: 20131031
  Transmission Date: 20140711
  Serious: Yes (Death, Life-Threatening)
  Sender: FDA-Public Use
  Company Number: LIT-089-13-GB

PATIENT
  Age: 79 Year
  Sex: Female

DRUGS (1)
  1. HUMAN NORMAL IMMUNOGLOBULIN [Suspect]
     Indication: NEUROMYELITIS OPTICA
     Route: 042

REACTIONS (3)
  - Lower respiratory tract infection [None]
  - Myocardial infarction [None]
  - Pneumonia [None]
